FAERS Safety Report 25453343 (Version 1)
Quarter: 2025Q2

REPORT INFORMATION
  Report Type: Spontaneous
  Country: US (occurrence: US)
  Receive Date: 20250618
  Receipt Date: 20250618
  Transmission Date: 20250717
  Serious: No
  Sender: AMGEN
  Company Number: US-AMGEN-USASP2025020424

PATIENT
  Age: 65 Year
  Sex: Male

DRUGS (2)
  1. REPATHA [Suspect]
     Active Substance: EVOLOCUMAB
     Indication: Hypercholesterolaemia
     Dosage: 140 MILLIGRAM, Q2WK
     Route: 065
  2. REPATHA [Suspect]
     Active Substance: EVOLOCUMAB
     Dosage: 140 MILLIGRAM, Q2WK
     Route: 065

REACTIONS (5)
  - Wrong technique in device usage process [Unknown]
  - Device difficult to use [Unknown]
  - Product administration error [Unknown]
  - Drug dose omission by device [Unknown]
  - Illness [Unknown]

NARRATIVE: CASE EVENT DATE: 20250128
